FAERS Safety Report 9825288 (Version 1)
Quarter: 2013Q4

REPORT INFORMATION
  Report Type: Spontaneous
  Country: US (occurrence: None)
  Receive Date: 20131028
  Receipt Date: 20131028
  Transmission Date: 20140711
  Serious: Yes (Other)
  Sender: FDA-Public Use
  Company Number: 2013US002113

PATIENT
  Sex: 0

DRUGS (1)
  1. ICLUSIG [Suspect]
     Dosage: ORAL
     Route: 048

REACTIONS (1)
  - Headache [None]
